FAERS Safety Report 8133213-6 (Version None)
Quarter: 2012Q1

REPORT INFORMATION
  Report Type: 
  Country: None (occurrence: None)
  Receive Date: 20120213
  Receipt Date: 20120208
  Transmission Date: 20120608
  Serious: Yes (Hospitalization, Other)
  Sender: FDA-Public Use
  Company Number: PHEH2008US11660

PATIENT
  Sex: Male
  Weight: 92.517 kg

DRUGS (13)
  1. FOLIC ACID [Concomitant]
     Dosage: 4 MG, QD
     Route: 048
  2. MAGNESIUM SULFATE [Concomitant]
     Dosage: 60 MG, PRN EVERY 2 HS
  3. LASIX [Concomitant]
     Dosage: 40 MG, BID
     Route: 048
  4. NEXIUM [Concomitant]
     Dosage: 40 MG, QD
     Route: 048
  5. EXJADE [Suspect]
     Indication: IRON OVERLOAD
     Dosage: UNK UKN, UNK
     Dates: end: 20080304
  6. LOVENOX [Concomitant]
     Dosage: 100 MG, Q12H
  7. EXJADE [Suspect]
     Indication: SICKLE CELL ANAEMIA
     Dosage: 1500 MG, QD
     Route: 048
     Dates: start: 20071003, end: 20080212
  8. COMPAZINE [Concomitant]
     Dosage: 10 MG, PRN EVERY 6 HS
  9. HYDREA [Concomitant]
     Dosage: 1500 MG, QD
     Route: 048
  10. EXJADE [Suspect]
     Dosage: 1000 MG, QD
     Route: 048
     Dates: start: 20100105, end: 20120117
  11. MS CONTIN [Concomitant]
     Dosage: 800 MG, Q8H
     Route: 048
  12. REGLAN [Concomitant]
     Dosage: 10 MG, QID
  13. ZINC SULFATE [Concomitant]
     Dosage: 220 MG, QD

REACTIONS (6)
  - PAIN [None]
  - RASH PRURITIC [None]
  - RASH [None]
  - SKIN ULCER [None]
  - SICKLE CELL ANAEMIA WITH CRISIS [None]
  - RASH MACULAR [None]
